FAERS Safety Report 10227701 (Version 1)
Quarter: 2014Q2

REPORT INFORMATION
  Report Type: Spontaneous
  Country: US (occurrence: None)
  Receive Date: 20140609
  Receipt Date: 20140609
  Transmission Date: 20141212
  Serious: Yes (Hospitalization)
  Sender: FDA-Public Use
  Company Number: None

PATIENT
  Age: 61 Year
  Sex: Female
  Weight: 63.5 kg

DRUGS (3)
  1. CYCLOPHOSPHAMIDE [Suspect]
  2. PENTOSTATIN [Suspect]
  3. RITUXIMAB [Suspect]

REACTIONS (3)
  - Rash [None]
  - Neutropenia [None]
  - Skin infection [None]
